FAERS Safety Report 6413990-2 (Version None)
Quarter: 2009Q4

REPORT INFORMATION
  Report Type: 
  Country: None (occurrence: None)
  Receive Date: 20091026
  Receipt Date: 20091019
  Transmission Date: 20100525
  Serious: Yes (Other)
  Sender: FDA-Public Use
  Company Number: US-JNJCH-2009016257

PATIENT
  Age: 72 Year
  Sex: Male
  Weight: 65.8 kg

DRUGS (1)
  1. BENADRYL [Suspect]
     Indication: HYPERSENSITIVITY
     Dosage: TEXT:ONE TABLET ONCE DAILY
     Route: 048

REACTIONS (3)
  - DRY EYE [None]
  - THERAPEUTIC RESPONSE UNEXPECTED [None]
  - VITREOUS FLOATERS [None]
